FAERS Safety Report 8335260-8 (Version None)
Quarter: 2012Q2

REPORT INFORMATION
  Report Type: 
  Country: None (occurrence: None)
  Receive Date: 20120503
  Receipt Date: 20120430
  Transmission Date: 20120825
  Serious: Yes (Death, Hospitalization)
  Sender: FDA-Public Use
  Company Number: US-ROCHE-536112

PATIENT
  Sex: Female

DRUGS (1)
  1. BONIVA [Suspect]
     Indication: OSTEOPOROSIS
     Route: 048
     Dates: start: 20061201, end: 20070901

REACTIONS (6)
  - CHEST PAIN [None]
  - MUSCLE SPASMS [None]
  - NECK PAIN [None]
  - DEATH [None]
  - PAIN IN EXTREMITY [None]
  - ARTHRALGIA [None]
